FAERS Safety Report 7855133-4 (Version None)
Quarter: 2011Q4

REPORT INFORMATION
  Report Type: 
  Country: None (occurrence: None)
  Receive Date: 20111026
  Receipt Date: 20111023
  Transmission Date: 20120403
  Serious: Yes (Hospitalization, Other)
  Sender: FDA-Public Use
  Company Number: PHHY2011NL92453

PATIENT
  Sex: Female

DRUGS (5)
  1. MIDAZOLAM HCL [Concomitant]
     Dosage: UNK
  2. ZOMETA [Suspect]
     Dosage: 4MG/5ML ONCE EVERY 28 DAYS (ADMINISTRATION 20 MIN IV)
     Dates: start: 20110823
  3. ZOMETA [Suspect]
     Indication: BREAST CANCER METASTATIC
     Dosage: 4MG/5ML ONCE EVERY 28 DAYS (ADMINISTRATION 20 MIN IV)
     Dates: start: 20110328
  4. ZOMETA [Suspect]
     Dosage: 4MG/5ML ONCE EVERY 28 DAYS (ADMINISTRATION 20 MIN IV)
     Dates: start: 20110920
  5. MORPHINE [Concomitant]
     Dosage: UNK

REACTIONS (5)
  - DYSPNOEA [None]
  - FATIGUE [None]
  - TERMINAL STATE [None]
  - COMA [None]
  - GENERAL PHYSICAL HEALTH DETERIORATION [None]
